FAERS Safety Report 20499951 (Version 1)
Quarter: 2022Q1

REPORT INFORMATION
  Report Type: Spontaneous
  Country: US (occurrence: US)
  Receive Date: 20220222
  Receipt Date: 20220222
  Transmission Date: 20220423
  Serious: Yes (Other)
  Sender: FDA-Public Use
  Company Number: US-UCBSA-2021040674

PATIENT
  Sex: Male

DRUGS (2)
  1. KEPPRA [Suspect]
     Active Substance: LEVETIRACETAM
     Indication: Product used for unknown indication
     Dosage: DOSE WAS 6 KEPPRA 500 MG. EACH
  2. DEPAKOTE [Concomitant]
     Active Substance: DIVALPROEX SODIUM
     Indication: Product used for unknown indication
     Dosage: 4 DF

REACTIONS (2)
  - Seizure [Unknown]
  - Insomnia [Unknown]

NARRATIVE: CASE EVENT DATE: 20201101
